FAERS Safety Report 6717447-0 (Version None)
Quarter: 2010Q2

REPORT INFORMATION
  Report Type: 
  Country: None (occurrence: None)
  Receive Date: 20100510
  Receipt Date: 20100428
  Transmission Date: 20101027
  Serious: Yes (Hospitalization)
  Sender: FDA-Public Use
  Company Number: BE-ROCHE-699547

PATIENT
  Sex: Male
  Weight: 88 kg

DRUGS (3)
  1. ROACTEMRA [Suspect]
     Indication: RHEUMATOID ARTHRITIS
     Route: 042
     Dates: start: 20090630
  2. BEER [Interacting]
     Route: 065
  3. PIROXICAM [Concomitant]
     Indication: RHEUMATOID ARTHRITIS
     Dosage: IF NEEDED (ABOUT 2 TIMES WEEKLY)

REACTIONS (3)
  - ALCOHOL INTERACTION [None]
  - CHEST PAIN [None]
  - CHOKING SENSATION [None]
